FAERS Safety Report 5789803-9 (Version None)
Quarter: 2008Q2

REPORT INFORMATION
  Report Type: 
  Country: None (occurrence: None)
  Receive Date: 20080626
  Receipt Date: 20080512
  Transmission Date: 20081010
  Serious: No
  Sender: FDA-Public Use
  Company Number: A0709319A

PATIENT
  Sex: Female
  Weight: 79.5 kg

DRUGS (2)
  1. ALLI [Suspect]
  2. UNSPECIFIED MEDICATION [Suspect]

REACTIONS (16)
  - ABDOMINAL DISTENSION [None]
  - ABNORMAL FAECES [None]
  - BINGE EATING [None]
  - DEFAECATION URGENCY [None]
  - DRUG INEFFECTIVE [None]
  - EMOTIONAL DISORDER [None]
  - FAECES DISCOLOURED [None]
  - FEELING ABNORMAL [None]
  - FLATULENCE [None]
  - FOOD CRAVING [None]
  - GASTROINTESTINAL DISORDER [None]
  - HUNGER [None]
  - NASOPHARYNGITIS [None]
  - RECTAL DISCHARGE [None]
  - ROTATOR CUFF SYNDROME [None]
  - WEIGHT INCREASED [None]
